FAERS Safety Report 9138957 (Version 1)
Quarter: 2013Q1

REPORT INFORMATION
  Report Type: Spontaneous
  Country: SE (occurrence: SE)
  Receive Date: 20130305
  Receipt Date: 20130305
  Transmission Date: 20140127
  Serious: Yes (Hospitalization)
  Sender: FDA-Public Use
  Company Number: SE-MYLANLABS-2013S1003993

PATIENT
  Age: 43 Year
  Sex: Female

DRUGS (4)
  1. CLOMIPRAMINE [Suspect]
     Indication: ANTIDEPRESSANT THERAPY
     Dosage: 3 IN THE MORNING, 3 IN THE EVENING
  2. CLOMIPRAMINE [Suspect]
     Indication: ANXIOLYTIC THERAPY
     Dosage: 3 IN THE MORNING, 3 IN THE EVENING
  3. CLOMIPRAMINE [Suspect]
     Indication: ANTIDEPRESSANT THERAPY
     Dosage: TWO TABLETS IN THE MORNING, THREE IN THE EVENING
  4. CLOMIPRAMINE [Suspect]
     Indication: ANXIOLYTIC THERAPY
     Dosage: TWO TABLETS IN THE MORNING, THREE IN THE EVENING

REACTIONS (8)
  - Weight increased [Unknown]
  - Dry mouth [Unknown]
  - Tremor [Unknown]
  - Nightmare [Unknown]
  - Aggression [Unknown]
  - Muscle twitching [Unknown]
  - Self injurious behaviour [Unknown]
  - Aphagia [Unknown]
